FAERS Safety Report 4366170-9 (Version None)
Quarter: 2004Q2

REPORT INFORMATION
  Report Type: 
  Country: None (occurrence: None)
  Receive Date: 20040524
  Receipt Date: 20040511
  Transmission Date: 20050107
  Serious: Yes (Hospitalization, Disabling, Other)
  Sender: FDA-Public Use
  Company Number: 2004029128

PATIENT
  Age: 63 Year
  Sex: Male
  Weight: 74 kg

DRUGS (3)
  1. CARDENALIN (DOXAZOSIN) [Suspect]
     Indication: HYPERTENSION
     Dosage: 1 MG (1 MG, 1 IN 1 D, ORAL)
     Route: 048
     Dates: start: 20040401, end: 20040413
  2. ENALAPRIL MALEATE [Suspect]
     Indication: HYPERTENSION
     Dosage: 5 MG (5 MG 1 IN 1 D), ORAL
     Route: 048
     Dates: start: 20031202
  3. BENIDIPINE HYDROCHLORIDE (BENIDIPINE HYDROCHLORIDE) [Suspect]
     Indication: HYPERTENSION
     Dosage: 4 MG (2 MG, 2 IN 1 D), ORAL
     Route: 048
     Dates: start: 20031218

REACTIONS (5)
  - ARTERIOSCLEROSIS [None]
  - EYE IRRITATION [None]
  - RETINAL ARTERY OCCLUSION [None]
  - RETINAL ARTERY THROMBOSIS [None]
  - RETINAL OEDEMA [None]
